FAERS Safety Report 6258588-4 (Version None)
Quarter: 2009Q3

REPORT INFORMATION
  Report Type: 
  Country: None (occurrence: None)
  Receive Date: 20090707
  Receipt Date: 20090629
  Transmission Date: 20100115
  Serious: Yes (Hospitalization)
  Sender: FDA-Public Use
  Company Number: IE-B.I. PHARMACEUTICALS,INC./RIDGEFIELD-2009-DE-00984GD

PATIENT
  Age: 59 Year
  Sex: Male

DRUGS (3)
  1. DIPYRIDAMOLE [Suspect]
  2. WARFARIN SODIUM [Suspect]
  3. ASPIRIN [Suspect]

REACTIONS (3)
  - EMBOLISM [None]
  - ISCHAEMIC CEREBRAL INFARCTION [None]
  - PULMONARY VENOUS THROMBOSIS [None]
